FAERS Safety Report 25123501 (Version 1)
Quarter: 2025Q1

REPORT INFORMATION
  Report Type: Spontaneous
  Country: US (occurrence: US)
  Receive Date: 20250326
  Receipt Date: 20250326
  Transmission Date: 20250408
  Serious: No
  Sender: GRIFOLS
  Company Number: US-IGSA-BIG0032014

PATIENT
  Sex: Female
  Weight: 51.701 kg

DRUGS (4)
  1. PROLASTIN-C LIQUID [Suspect]
     Active Substance: .ALPHA.1-PROTEINASE INHIBITOR HUMAN
     Dosage: 3183 MILLIGRAM, Q.WK.
     Route: 042
  2. EPINEPHRINE [Concomitant]
     Active Substance: EPINEPHRINE
  3. HEPARIN [Concomitant]
     Active Substance: HEPARIN SODIUM
  4. SODIUM CHLORIDE [Concomitant]
     Active Substance: SODIUM CHLORIDE

REACTIONS (1)
  - Nasopharyngitis [Recovered/Resolved]
